FAERS Safety Report 19358826 (Version 1)
Quarter: 2021Q2

REPORT INFORMATION
  Report Type: Spontaneous
  Country: US (occurrence: US)
  Receive Date: 20210602
  Receipt Date: 20210602
  Transmission Date: 20210717
  Serious: No
  Sender: FDA-Public Use
  Company Number: None

PATIENT
  Age: 67 Year
  Sex: Male

DRUGS (5)
  1. HYDROXYZINE PAMOATE. [Suspect]
     Active Substance: HYDROXYZINE PAMOATE
     Indication: ANXIETY
     Dosage: ?          QUANTITY:1 CAPSULE(S);?
     Route: 048
     Dates: start: 20210601, end: 20210601
  2. OXYGEN. [Concomitant]
     Active Substance: OXYGEN
  3. OMEPRAZOLE. [Concomitant]
     Active Substance: OMEPRAZOLE
  4. PLAVIX [Concomitant]
     Active Substance: CLOPIDOGREL BISULFATE
  5. PRAVASTATIN. [Concomitant]
     Active Substance: PRAVASTATIN

REACTIONS (8)
  - Feeling cold [None]
  - Swelling [None]
  - Gingival swelling [None]
  - Dyspnoea [None]
  - Chest discomfort [None]
  - Hypoaesthesia [None]
  - Dysphagia [None]
  - Dizziness [None]

NARRATIVE: CASE EVENT DATE: 20210602
